FAERS Safety Report 7007358-8 (Version None)
Quarter: 2010Q3

REPORT INFORMATION
  Report Type: 
  Country: None (occurrence: None)
  Receive Date: 20100920
  Receipt Date: 20100907
  Transmission Date: 20110219
  Serious: Yes (Congenital Anomaly)
  Sender: FDA-Public Use
  Company Number: B0674910A

PATIENT
  Sex: 0

DRUGS (1)
  1. LAMOTRIGINE [Suspect]
     Indication: EPILEPSY
     Dosage: TRANSPLACENTARY
     Route: 064

REACTIONS (3)
  - CONGENITAL HYDRONEPHROSIS [None]
  - MATERNAL DRUGS AFFECTING FOETUS [None]
  - URETHRAL VALVES [None]
